FAERS Safety Report 24867499 (Version 1)
Quarter: 2025Q1

REPORT INFORMATION
  Report Type: Report from Study
  Country: US (occurrence: US)
  Receive Date: 20250121
  Receipt Date: 20250121
  Transmission Date: 20250408
  Serious: Yes (Hospitalization)
  Sender: BAYER HEALTHCARE LLC
  Company Number: US-BAYER-2025A006342

PATIENT
  Age: 44 Year
  Sex: Female

DRUGS (18)
  1. ASPIRIN [Suspect]
     Active Substance: ASPIRIN
  2. LEVOMEFOLIC ACID [Suspect]
     Active Substance: LEVOMEFOLIC ACID
  3. OXYCONTIN [Suspect]
     Active Substance: OXYCODONE HYDROCHLORIDE
  4. SILDENAFIL [Suspect]
     Active Substance: SILDENAFIL
  5. OXYCODONE HYDROCHLORIDE [Suspect]
     Active Substance: OXYCODONE HYDROCHLORIDE
  6. HUMIRA [Suspect]
     Active Substance: ADALIMUMAB
  7. COSMETICS [Suspect]
     Active Substance: COSMETICS
  8. GLYCOPYRRONIUM\INDACATEROL [Suspect]
     Active Substance: GLYCOPYRRONIUM\INDACATEROL
  9. REBOXETINE [Suspect]
     Active Substance: REBOXETINE
  10. NOVORAPID [Suspect]
     Active Substance: INSULIN ASPART
  11. IVABRADINE [Suspect]
     Active Substance: IVABRADINE
  12. EZETIMIBE [Suspect]
     Active Substance: EZETIMIBE
  13. PREDNISOLONE [Suspect]
     Active Substance: PREDNISOLONE
  14. GLUCAGEN HYPOKIT [Suspect]
     Active Substance: GLUCAGON HYDROCHLORIDE
  15. NITROGLYCERIN [Suspect]
     Active Substance: NITROGLYCERIN
  16. CHOLECALCIFEROL [Suspect]
     Active Substance: CHOLECALCIFEROL
  17. ROSUVASTATIN [Suspect]
     Active Substance: ROSUVASTATIN
  18. PRASUGREL [Suspect]
     Active Substance: PRASUGREL

REACTIONS (15)
  - Abdominal pain upper [None]
  - Ageusia [None]
  - Arthralgia [None]
  - Chronic cutaneous lupus erythematosus [None]
  - Depression [None]
  - DNA antibody negative [None]
  - Drug ineffective [None]
  - Drug interaction [None]
  - Fibromyalgia [None]
  - Gait disturbance [None]
  - Liver function test abnormal [None]
  - Migraine [None]
  - Nausea [None]
  - Panic attack [None]
  - Paraesthesia [None]
